FAERS Safety Report 5475793-5 (Version None)
Quarter: 2007Q4

REPORT INFORMATION
  Report Type: 
  Country: None (occurrence: None)
  Receive Date: 20071003
  Receipt Date: 20070927
  Transmission Date: 20080405
  Serious: Yes (Other)
  Sender: FDA-Public Use
  Company Number: A0680915A

PATIENT
  Age: 18 Year
  Sex: Female

DRUGS (5)
  1. VALTREX [Suspect]
     Indication: GENITAL HERPES
     Dosage: 500MG TWICE PER DAY
     Route: 048
     Dates: start: 20070501, end: 20070825
  2. WESTCORT [Suspect]
     Indication: PRURITUS
     Route: 061
     Dates: end: 20070825
  3. CLOBETASOL PROPIONATE [Suspect]
     Indication: PRURITUS
     Route: 061
     Dates: start: 20070501, end: 20070801
  4. VISTARIL [Concomitant]
  5. XYLOCAINE [Concomitant]
     Route: 061
     Dates: start: 20070501

REACTIONS (5)
  - CUSHING'S SYNDROME [None]
  - CUSHINGOID [None]
  - DRUG ADMINISTRATION ERROR [None]
  - HIRSUTISM [None]
  - ILL-DEFINED DISORDER [None]
